FAERS Safety Report 6269714-5 (Version None)
Quarter: 2009Q3

REPORT INFORMATION
  Report Type: 
  Country: None (occurrence: None)
  Receive Date: 20090716
  Receipt Date: 20090704
  Transmission Date: 20100115
  Serious: Yes (Other)
  Sender: FDA-Public Use
  Company Number: IT-JNJFOC-20081004542

PATIENT
  Age: 72 Year
  Sex: Male

DRUGS (2)
  1. INFLIXIMAB [Suspect]
     Indication: POLYARTHRITIS
     Dosage: 3 INFUSIONS (THERAPY DURATION 1 MONTH)
     Route: 042
  2. METHOTREXATE [Concomitant]

REACTIONS (3)
  - DRUG INEFFECTIVE [None]
  - INFUSION RELATED REACTION [None]
  - VENTRICULAR TACHYCARDIA [None]
